FAERS Safety Report 21592123 (Version 12)
Quarter: 2024Q3

REPORT INFORMATION
  Report Type: Report from Study
  Country: MX (occurrence: MX)
  Receive Date: 20221114
  Receipt Date: 20240814
  Transmission Date: 20241016
  Serious: Yes (Other)
  Sender: NOVARTIS
  Company Number: MX-002147023-NVSC2022MX200391

PATIENT
  Age: 48 Year
  Sex: Female
  Weight: 90 kg

DRUGS (3)
  1. TASIGNA [Suspect]
     Active Substance: NILOTINIB
     Indication: Chronic myeloid leukaemia
     Dosage: 2 DOSAGE FORM, Q12H
     Route: 048
  2. METOPROLOL [Concomitant]
     Active Substance: METOPROLOL
     Indication: Product used for unknown indication
     Dosage: UNK
     Route: 065
  3. CARBAMAZEPINE [Concomitant]
     Active Substance: CARBAMAZEPINE
     Indication: Neuralgia
     Dosage: UNK
     Route: 065

REACTIONS (57)
  - Hallucination, visual [Unknown]
  - Ovarian cancer [Unknown]
  - Second primary malignancy [Unknown]
  - Alcoholism [Unknown]
  - Illness [Unknown]
  - COVID-19 [Unknown]
  - Liver disorder [Unknown]
  - Memory impairment [Unknown]
  - Feeling abnormal [Unknown]
  - Facial pain [Unknown]
  - Stress [Unknown]
  - Malaise [Unknown]
  - Eating disorder [Unknown]
  - Influenza [Unknown]
  - Mysophobia [Unknown]
  - Vein disorder [Unknown]
  - Mood swings [Unknown]
  - Gait disturbance [Unknown]
  - Frustration tolerance decreased [Unknown]
  - Psychiatric symptom [Unknown]
  - Irritability [Unknown]
  - Jealous delusion [Unknown]
  - Decreased immune responsiveness [Unknown]
  - Anger [Unknown]
  - Libido decreased [Unknown]
  - Unevaluable event [Unknown]
  - Apathy [Unknown]
  - Hormone level abnormal [Unknown]
  - Tension [Unknown]
  - Laziness [Unknown]
  - Somnolence [Unknown]
  - Abnormal sleep-related event [Unknown]
  - General symptom [Unknown]
  - Regressive behaviour [Unknown]
  - Anxiety [Unknown]
  - Blood triglycerides increased [Unknown]
  - Blood cholesterol increased [Unknown]
  - Headache [Unknown]
  - Overweight [Unknown]
  - Feeling hot [Unknown]
  - Visual impairment [Not Recovered/Not Resolved]
  - Depressed mood [Unknown]
  - Presyncope [Unknown]
  - Fatigue [Unknown]
  - Depression [Unknown]
  - Pain in extremity [Unknown]
  - Abdominal pain upper [Unknown]
  - Asthenia [Unknown]
  - Hypertension [Unknown]
  - Tinnitus [Unknown]
  - Weight increased [Unknown]
  - Incorrect dose administered [Unknown]
  - Hot flush [Unknown]
  - Pain [Unknown]
  - Plantar fasciitis [Unknown]
  - Arthralgia [Unknown]
  - Back pain [Unknown]

NARRATIVE: CASE EVENT DATE: 20231201
